FAERS Safety Report 23446370 (Version 3)
Quarter: 2024Q1

REPORT INFORMATION
  Report Type: Spontaneous
  Country: US (occurrence: US)
  Receive Date: 20240126
  Receipt Date: 20240311
  Transmission Date: 20240410
  Serious: Yes (Hospitalization, Other)
  Sender: FDA-Public Use
  Company Number: US-HIKMA PHARMACEUTICALS USA INC.-US-H14001-24-00762

PATIENT
  Sex: Male

DRUGS (2)
  1. QUETIAPINE [Suspect]
     Active Substance: QUETIAPINE
     Indication: Hallucination, auditory
     Dosage: 1.5 DOSAGE FORM, QD, AT BEDTIME
     Route: 048
     Dates: start: 20231026
  2. QUETIAPINE [Suspect]
     Active Substance: QUETIAPINE
     Indication: Insomnia

REACTIONS (14)
  - Dyspnoea [Unknown]
  - Discomfort [Unknown]
  - Tachycardia [Unknown]
  - Dizziness [Unknown]
  - Confusional state [Unknown]
  - Vision blurred [Unknown]
  - Dysphagia [Unknown]
  - Tardive dyskinesia [Unknown]
  - Dry mouth [Unknown]
  - Syncope [Unknown]
  - Anxiety [Unknown]
  - Near death experience [Unknown]
  - Choking sensation [Unknown]
  - General physical health deterioration [Unknown]

NARRATIVE: CASE EVENT DATE: 20231001
